FAERS Safety Report 4706948-2 (Version None)
Quarter: 2005Q3

REPORT INFORMATION
  Report Type: 
  Country: None (occurrence: None)
  Receive Date: 20050701
  Receipt Date: 20050620
  Transmission Date: 20060218
  Serious: Yes (Other)
  Sender: FDA-Public Use
  Company Number: 2005092436

PATIENT
  Sex: Female

DRUGS (2)
  1. VERAPAMIL HYDROCHLORIDE [Suspect]
     Indication: HYPERTENSION
  2. OXYCONTIN [Concomitant]

REACTIONS (24)
  - ASTHMA [None]
  - ATRIOVENTRICULAR BLOCK [None]
  - BLOOD CHOLESTEROL INCREASED [None]
  - CARDIAC DISORDER [None]
  - CERVIX CARCINOMA [None]
  - CHRONIC OBSTRUCTIVE PULMONARY DISEASE [None]
  - DEPRESSION [None]
  - FATIGUE [None]
  - FIBROMYALGIA [None]
  - HEPATITIS C [None]
  - INCONTINENCE [None]
  - INFARCTION [None]
  - INSOMNIA [None]
  - MIGRAINE [None]
  - MULTIPLE ALLERGIES [None]
  - NARCOLEPSY [None]
  - OBESITY [None]
  - OBSESSIVE-COMPULSIVE DISORDER [None]
  - OSTEOARTHRITIS [None]
  - PAIN [None]
  - POST-TRAUMATIC STRESS DISORDER [None]
  - PSYCHOMOTOR HYPERACTIVITY [None]
  - RENAL DISORDER [None]
  - SCOLIOSIS [None]
